FAERS Safety Report 21190129 (Version 1)
Quarter: 2022Q3

REPORT INFORMATION
  Report Type: Report from Study
  Country: MX (occurrence: MX)
  Receive Date: 20220809
  Receipt Date: 20220809
  Transmission Date: 20221027
  Serious: Yes (Hospitalization)
  Sender: FDA-Public Use
  Company Number: MX-NOVARTISPH-NVSC2021MX301624

PATIENT
  Age: 78 Year
  Sex: Female
  Weight: 47 kg

DRUGS (6)
  1. EXFORGE [Suspect]
     Active Substance: AMLODIPINE BESYLATE\VALSARTAN
     Indication: Hypertension
     Dosage: 0.5 DOSAGE FORM, BID
     Route: 048
     Dates: start: 20211214
  2. EXFORGE [Suspect]
     Active Substance: AMLODIPINE BESYLATE\VALSARTAN
     Indication: Cardiac failure
     Dosage: 0.5 DOSAGE FORM(EVERY 12 HOURS)
     Route: 048
  3. EXFORGE [Suspect]
     Active Substance: AMLODIPINE BESYLATE\VALSARTAN
     Dosage: 1 DOSAGE FORM (1 IN THE MORNING, 1 AT NIGHT)
     Route: 048
     Dates: start: 20211220
  4. EXFORGE [Suspect]
     Active Substance: AMLODIPINE BESYLATE\VALSARTAN
     Dosage: 0.5 DOSAGE FORM (160/5 MG), QD
     Route: 048
  5. BISOPROLOL FUMARATE [Concomitant]
     Active Substance: BISOPROLOL FUMARATE
     Indication: Arrhythmia
     Dosage: 0.5 DOSAGE FORM, BID(1 YEAR AND A HALF AGO)
     Route: 048
  6. COMBIGAN D [Concomitant]
     Indication: Glaucoma
     Dosage: UNK(1 IN EACH EYE)EVERY 12 HOURS
     Route: 047

REACTIONS (11)
  - Pneumonia bacterial [Recovering/Resolving]
  - Gait disturbance [Unknown]
  - Weight decreased [Unknown]
  - Abdominal pain upper [Unknown]
  - Blood pressure decreased [Recovered/Resolved]
  - Eating disorder [Unknown]
  - Asthenia [Recovering/Resolving]
  - Gastric disorder [Recovering/Resolving]
  - Off label use [Not Recovered/Not Resolved]
  - Product use in unapproved indication [Unknown]
  - Wrong technique in product usage process [Unknown]

NARRATIVE: CASE EVENT DATE: 20211214
